FAERS Safety Report 13771170 (Version 3)
Quarter: 2017Q3

REPORT INFORMATION
  Report Type: Report from Study
  Country: US (occurrence: US)
  Receive Date: 20170720
  Receipt Date: 20170905
  Transmission Date: 20171127
  Serious: No
  Sender: FDA-Public Use
  Company Number: US-009507513-1707USA006217

PATIENT
  Sex: Female
  Weight: 135.1 kg

DRUGS (1)
  1. IMPLANON [Suspect]
     Active Substance: ETONOGESTREL
     Dosage: 68 MG/1 ROD PER 3 YEARS
     Route: 059
     Dates: start: 20160824

REACTIONS (2)
  - Device kink [Not Recovered/Not Resolved]
  - No adverse event [Unknown]
